FAERS Safety Report 14171657 (Version 2)
Quarter: 2018Q1

REPORT INFORMATION
  Report Type: Spontaneous
  Country: US (occurrence: US)
  Receive Date: 20171108
  Receipt Date: 20180110
  Transmission Date: 20180508
  Serious: Yes (Other)
  Sender: FDA-Public Use
  Company Number: US-BAUSCH-BL-2017-028993

PATIENT
  Age: 60 Year
  Sex: Female
  Weight: 67.19 kg

DRUGS (1)
  1. OBAGI-C RX SYSTEM C-THERAPY SKIN LIGHTENING WITH VITAMINS C AND E [Suspect]
     Active Substance: HYDROQUINONE
     Indication: THERAPEUTIC SKIN CARE TOPICAL
     Dosage: ONE APPLICATION ON THE FACE (SINGLE)
     Route: 061
     Dates: start: 20171009, end: 20171009

REACTIONS (2)
  - Eye swelling [Recovered/Resolved]
  - Swelling face [Recovered/Resolved]

NARRATIVE: CASE EVENT DATE: 20171010
